FAERS Safety Report 7355549-9 (Version None)
Quarter: 2011Q1

REPORT INFORMATION
  Report Type: 
  Country: None (occurrence: None)
  Receive Date: 20110316
  Receipt Date: 20110309
  Transmission Date: 20110831
  Serious: Yes (Congenital Anomaly)
  Sender: FDA-Public Use
  Company Number: A0918290A

PATIENT
  Sex: Female
  Weight: 4.1 kg

DRUGS (3)
  1. IRON [Concomitant]
  2. PAXIL [Suspect]
     Indication: PANIC ATTACK
     Dosage: 20MG PER DAY
     Route: 048
  3. PRENATAL VITAMINS [Concomitant]

REACTIONS (3)
  - MATERNAL DRUGS AFFECTING FOETUS [None]
  - KYPHOSIS [None]
  - DRUG EXPOSURE DURING PREGNANCY [None]
